FAERS Safety Report 14924594 (Version 1)
Quarter: 2018Q2

REPORT INFORMATION
  Report Type: Spontaneous
  Country: DE (occurrence: DE)
  Receive Date: 20180522
  Receipt Date: 20180522
  Transmission Date: 20180711
  Serious: Yes (Other)
  Sender: FDA-Public Use
  Company Number: DE-JNJFOC-20180524720

PATIENT
  Sex: Female

DRUGS (2)
  1. REGAINE FRAUEN 2% [Suspect]
     Active Substance: MINOXIDIL
     Route: 061
  2. REGAINE FRAUEN 2% [Suspect]
     Active Substance: MINOXIDIL
     Indication: ALOPECIA
     Dosage: ABOUT THREE YEARS AGO
     Route: 061
     Dates: start: 2015

REACTIONS (2)
  - Arrhythmia [Recovered/Resolved]
  - Contraindicated product administered [Unknown]

NARRATIVE: CASE EVENT DATE: 2015
